FAERS Safety Report 19078335 (Version 1)
Quarter: 2021Q1

REPORT INFORMATION
  Report Type: Spontaneous
  Country: MX (occurrence: MX)
  Receive Date: 20210331
  Receipt Date: 20210331
  Transmission Date: 20210420
  Serious: Yes (Death)
  Sender: FDA-Public Use
  Company Number: MX-TORRENT-00000188

PATIENT
  Age: 87 Year
  Sex: Female

DRUGS (3)
  1. MEMANTINE. [Suspect]
     Active Substance: MEMANTINE
     Indication: DEMENTIA ALZHEIMER^S TYPE
     Dosage: ONE 10MG TAB/DAY
     Route: 048
     Dates: start: 20160401, end: 20200806
  2. DONEPEZIL. [Suspect]
     Active Substance: DONEPEZIL
     Indication: DEMENTIA ALZHEIMER^S TYPE
     Dosage: ONE 10MG TAB/DAY
     Route: 048
     Dates: start: 20160401, end: 20200806
  3. QUETIAPINE. [Suspect]
     Active Substance: QUETIAPINE
     Indication: DEMENTIA ALZHEIMER^S TYPE
     Dosage: ONE 25MG TAB/DAY
     Route: 048
     Dates: start: 20160401, end: 20200806

REACTIONS (1)
  - COVID-19 pneumonia [Fatal]
